FAERS Safety Report 9646614 (Version 3)
Quarter: 2013Q4

REPORT INFORMATION
  Report Type: Spontaneous
  Country: GR (occurrence: GR)
  Receive Date: 20131026
  Receipt Date: 20131112
  Transmission Date: 20140711
  Serious: Yes (Hospitalization, Other)
  Sender: FDA-Public Use
  Company Number: GR-AMGEN-GRCSP2013066200

PATIENT
  Sex: Male

DRUGS (5)
  1. MIMPARA [Suspect]
     Indication: HYPERPARATHYROIDISM PRIMARY
     Dosage: 60 MG, BID
     Route: 065
     Dates: start: 2008
  2. CALCIUM [Concomitant]
     Route: 065
  3. COAPROVEL [Concomitant]
  4. ADALAT [Concomitant]
  5. VOLTAREN                           /00372301/ [Concomitant]

REACTIONS (5)
  - Hypomagnesaemia [Recovering/Resolving]
  - Paraneoplastic syndrome [Unknown]
  - Fatigue [Recovering/Resolving]
  - Myalgia [Recovering/Resolving]
  - Muscle spasms [Recovering/Resolving]
